FAERS Safety Report 18414250 (Version 2)
Quarter: 2020Q4

REPORT INFORMATION
  Report Type: Spontaneous
  Country: PT (occurrence: PT)
  Receive Date: 20201022
  Receipt Date: 20201111
  Transmission Date: 20210114
  Serious: Yes (Disabling)
  Sender: FDA-Public Use
  Company Number: PT-TEVA-2020-PT-1840102

PATIENT
  Age: 27 Year
  Sex: Male
  Weight: 100 kg

DRUGS (1)
  1. PAROXETINA TEVA [Suspect]
     Active Substance: PAROXETINE HYDROCHLORIDE
     Indication: ANXIETY
     Dosage: 1/2 CP FOR 7 DAYS, CHANGES TO 1 CP AFTER 7 DAYS
     Route: 048
     Dates: start: 20200713, end: 20200913

REACTIONS (7)
  - Anorgasmia [Recovered/Resolved]
  - Ejaculation failure [Recovered/Resolved]
  - Nausea [Recovered/Resolved]
  - Hyperhidrosis [Recovered/Resolved]
  - Decreased appetite [Recovered/Resolved]
  - Disturbance in attention [Recovered/Resolved]
  - Orthostatic hypotension [Recovered/Resolved]

NARRATIVE: CASE EVENT DATE: 20200716
